FAERS Safety Report 6853726-4 (Version None)
Quarter: 2010Q3

REPORT INFORMATION
  Report Type: 
  Country: None (occurrence: None)
  Receive Date: 20100717
  Receipt Date: 20071215
  Transmission Date: 20110219
  Serious: No
  Sender: FDA-Public Use
  Company Number: US-PFIZER INC-2007105995

PATIENT
  Sex: Female
  Weight: 55.3 kg

DRUGS (2)
  1. CHANTIX [Suspect]
     Indication: SMOKING CESSATION THERAPY
     Dates: start: 20071212
  2. OPHTHALMOLOGICALS [Concomitant]
     Indication: GLAUCOMA

REACTIONS (4)
  - ILL-DEFINED DISORDER [None]
  - INSOMNIA [None]
  - MUSCULOSKELETAL CHEST PAIN [None]
  - NAUSEA [None]
